FAERS Safety Report 12927880 (Version 3)
Quarter: 2017Q1

REPORT INFORMATION
  Report Type: Report from Study
  Country: US (occurrence: US)
  Receive Date: 20161110
  Receipt Date: 20170217
  Transmission Date: 20170428
  Serious: Yes (Other)
  Sender: FDA-Public Use
  Company Number: US-ROCHE-1851100

PATIENT
  Age: 17 Year
  Sex: Male
  Weight: 137 kg

DRUGS (1)
  1. NUTROPIN AQ [Suspect]
     Active Substance: SOMATROPIN
     Indication: PRODUCT USED FOR UNKNOWN INDICATION
     Dosage: DAILY
     Route: 058

REACTIONS (6)
  - Necrosis [Unknown]
  - Osteochondrosis [Recovering/Resolving]
  - Osteonecrosis [Unknown]
  - Joint effusion [Unknown]
  - Synovial rupture [Unknown]
  - Arthralgia [Unknown]

NARRATIVE: CASE EVENT DATE: 20161008
